FAERS Safety Report 7101112-4 (Version None)
Quarter: 2010Q4

REPORT INFORMATION
  Report Type: 
  Country: None (occurrence: None)
  Receive Date: 20101113
  Receipt Date: 20100429
  Transmission Date: 20110411
  Serious: No
  Sender: FDA-Public Use
  Company Number: US-ALLERGAN-1005693US

PATIENT

DRUGS (1)
  1. BOTOX COSMETIC [Suspect]
     Indication: PRODUCT USED FOR UNKNOWN INDICATION

REACTIONS (1)
  - EYELID PTOSIS [None]
